FAERS Safety Report 6054988-6 (Version None)
Quarter: 2009Q1

REPORT INFORMATION
  Report Type: 
  Country: None (occurrence: None)
  Receive Date: 20090122
  Receipt Date: 20090116
  Transmission Date: 20090719
  Serious: Yes (Hospitalization)
  Sender: FDA-Public Use
  Company Number: 2008SP020664

PATIENT
  Age: 42 Year
  Sex: Male

DRUGS (1)
  1. INTROMA (INTERFERON ALFA-2B RECOMBINANT) (INTERFERON ALFA-2B) [Suspect]
     Indication: MALIGNANT MELANOMA
     Dosage: 1 DF, TIW; SC
     Route: 058
     Dates: start: 20070801, end: 20080601

REACTIONS (5)
  - INFLUENZA LIKE ILLNESS [None]
  - LUNG NEOPLASM [None]
  - LYMPHADENOPATHY [None]
  - METASTASIS [None]
  - PULMONARY SARCOIDOSIS [None]
